FAERS Safety Report 12980424 (Version 2)
Quarter: 2016Q4

REPORT INFORMATION
  Report Type: Spontaneous
  Country: JP (occurrence: JP)
  Receive Date: 20161128
  Receipt Date: 20161229
  Transmission Date: 20170207
  Serious: Yes (Hospitalization)
  Sender: FDA-Public Use
  Company Number: JP-MYLANLABS-2016M1050036

PATIENT

DRUGS (4)
  1. NO DRUG NAME [Suspect]
     Active Substance: UNSPECIFIED INGREDIENT
     Indication: LAPAROSCOPIC SURGERY
     Route: 065
  2. REMIFENTANIL [Suspect]
     Active Substance: REMIFENTANIL
     Indication: LAPAROSCOPIC SURGERY
     Route: 008
  3. SEVOFLURANE MYLAN [Suspect]
     Active Substance: SEVOFLURANE
     Indication: LAPAROSCOPIC SURGERY
     Dosage: 19 ML, TOTAL
     Route: 055
  4. ROCURONIUM [Suspect]
     Active Substance: ROCURONIUM BROMIDE
     Indication: LAPAROSCOPIC SURGERY
     Route: 065

REACTIONS (1)
  - Hyperthermia malignant [Recovering/Resolving]
